FAERS Safety Report 20802517 (Version 1)
Quarter: 2022Q2

REPORT INFORMATION
  Report Type: Spontaneous
  Country: US (occurrence: None)
  Receive Date: 20220509
  Receipt Date: 20220509
  Transmission Date: 20220720
  Serious: Yes (Hospitalization)
  Sender: FDA-Public Use
  Company Number: None

PATIENT
  Age: 74 Year
  Sex: Male
  Weight: 39.09 kg

DRUGS (1)
  1. AMIODARONE HYDROCHLORIDE [Suspect]
     Active Substance: AMIODARONE HYDROCHLORIDE
     Indication: Atrial fibrillation
     Dosage: FREQUENCY : ONCE;?
     Route: 042
     Dates: start: 20220325, end: 20220325

REACTIONS (3)
  - Dyspnoea [None]
  - Oropharyngeal oedema [None]
  - Chest pain [None]

NARRATIVE: CASE EVENT DATE: 20220325
